FAERS Safety Report 6820028-1 (Version None)
Quarter: 2010Q3

REPORT INFORMATION
  Report Type: 
  Country: None (occurrence: None)
  Receive Date: 20100707
  Receipt Date: 20100628
  Transmission Date: 20110219
  Serious: Yes (Other)
  Sender: FDA-Public Use
  Company Number: GB-SANOFI-AVENTIS-2010SA025107

PATIENT
  Age: 45 Year
  Sex: Female

DRUGS (15)
  1. ZOLPIDEM [Interacting]
     Indication: INSOMNIA
     Dosage: LONG-TERM THERAPY
     Route: 048
     Dates: end: 20100618
  2. DIHYDROCODEINE BITARTRATE INJ [Interacting]
     Dosage: LONG-TERM THERAPY
     Route: 048
     Dates: end: 20100618
  3. CAFFEINE [Interacting]
     Indication: INSOMNIA
     Route: 065
  4. HALOPERIDOL [Suspect]
     Dosage: LONG-TERM THERAPY
     Route: 048
  5. DIAZEPAM [Suspect]
     Indication: ANXIETY
     Dosage: LONG-TERM THERAPY
     Route: 048
  6. VALPROATE SODIUM [Suspect]
     Dosage: LONG-TERM THERAPY
     Route: 048
  7. SIMVASTATIN [Concomitant]
     Indication: PRODUCT USED FOR UNKNOWN INDICATION
     Route: 065
  8. LANSOPRAZOLE [Concomitant]
     Indication: PRODUCT USED FOR UNKNOWN INDICATION
     Route: 065
  9. CANDESARTAN CILEXETIL [Concomitant]
     Indication: PRODUCT USED FOR UNKNOWN INDICATION
     Dosage: IN THE MORNING
     Route: 065
  10. AMLODIPINE [Concomitant]
     Indication: PRODUCT USED FOR UNKNOWN INDICATION
     Dosage: IN THE MORNING
     Route: 065
  11. PROCYCLIDINE HYDROCHLORIDE 2MG TAB [Concomitant]
     Indication: PRODUCT USED FOR UNKNOWN INDICATION
     Dosage: IN THE MORNING
     Route: 065
  12. ASPIRIN [Concomitant]
     Indication: PRODUCT USED FOR UNKNOWN INDICATION
     Dosage: IN THE MORNING
     Route: 065
  13. CITALOPRAM HYDROBROMIDE [Concomitant]
     Indication: PRODUCT USED FOR UNKNOWN INDICATION
     Dosage: IN THE MORNING
     Route: 065
  14. INSULIN [Concomitant]
     Route: 065
  15. CETIRIZINE DIHYDROCHLORIDE [Concomitant]
     Indication: PRODUCT USED FOR UNKNOWN INDICATION
     Dosage: IN THE MORNING
     Route: 065

REACTIONS (5)
  - CONFUSIONAL STATE [None]
  - DRUG ABUSE [None]
  - DRUG INTERACTION [None]
  - HALLUCINATION [None]
  - SEDATION [None]
